FAERS Safety Report 5090080-5 (Version None)
Quarter: 2006Q3

REPORT INFORMATION
  Report Type: 
  Country: None (occurrence: None)
  Receive Date: 20060828
  Receipt Date: 20060821
  Transmission Date: 20061208
  Serious: Yes (Hospitalization)
  Sender: FDA-Public Use
  Company Number: 2006AP03966

PATIENT
  Age: 702 Month
  Sex: Female
  Weight: 66 kg

DRUGS (6)
  1. IRESSA [Suspect]
     Indication: LUNG NEOPLASM MALIGNANT
     Route: 048
     Dates: start: 20060512
  2. ALEVIATIN [Concomitant]
     Indication: EPILEPSY
     Route: 048
     Dates: start: 20060512
  3. GASMOTIN [Concomitant]
     Indication: GASTRITIS
     Route: 048
     Dates: start: 20060512
  4. MUCOSTA [Concomitant]
     Indication: GASTRITIS
     Route: 048
     Dates: start: 20060512
  5. SINSERON [Concomitant]
     Indication: VOMITING
     Route: 048
     Dates: start: 20060512
  6. BLOSTAR M [Concomitant]
     Indication: GASTRIC ULCER
     Route: 048
     Dates: start: 20060512

REACTIONS (1)
  - ANAEMIA [None]
